FAERS Safety Report 15092872 (Version 3)
Quarter: 2018Q3

REPORT INFORMATION
  Report Type: Report from Study
  Country: CA (occurrence: CA)
  Receive Date: 20180629
  Receipt Date: 20180927
  Transmission Date: 20181010
  Serious: Yes (Other)
  Sender: FDA-Public Use
  Company Number: CA-SA-2018SA014977

PATIENT
  Age: 35 Year
  Sex: Female

DRUGS (10)
  1. ACETAMINOPHEN. [Concomitant]
     Active Substance: ACETAMINOPHEN
     Indication: PREMEDICATION
     Dosage: 1 G,PRN
     Route: 048
     Dates: start: 20180115
  2. ALEMTUZUMAB [Suspect]
     Active Substance: ALEMTUZUMAB
     Dosage: 12 MG,QD
     Route: 041
     Dates: start: 20180115, end: 20180116
  3. ACICLOVIR [Concomitant]
     Active Substance: ACYCLOVIR
     Indication: PREMEDICATION
     Dosage: 200 MG,UNK
     Route: 048
     Dates: start: 20180115
  4. ALEMTUZUMAB [Suspect]
     Active Substance: ALEMTUZUMAB
     Dosage: 12 MG,QD
     Route: 041
     Dates: start: 20180122, end: 20180122
  5. ZANTAC [Suspect]
     Active Substance: RANITIDINE HYDROCHLORIDE
     Dosage: UNK UNK,UNK
     Route: 065
  6. METHYLPREDNISOLONE. [Suspect]
     Active Substance: METHYLPREDNISOLONE
     Indication: PREMEDICATION
     Dosage: 1 G,UNK
     Route: 042
     Dates: start: 20180115, end: 20180118
  7. RANITIDINE. [Concomitant]
     Active Substance: RANITIDINE
     Indication: PREMEDICATION
     Dosage: 150 MG,UNK
     Route: 048
     Dates: start: 20180115, end: 20180122
  8. ALEMTUZUMAB [Suspect]
     Active Substance: ALEMTUZUMAB
     Dosage: 12 MG,QD
     Route: 041
     Dates: start: 20180118, end: 20180119
  9. CETIRIZINE HYDROCHLORIDE. [Suspect]
     Active Substance: CETIRIZINE HYDROCHLORIDE
     Indication: PREMEDICATION
     Dosage: 10 MG,UNK
     Route: 048
     Dates: start: 20180115, end: 20180122
  10. ALEMTUZUMAB [Suspect]
     Active Substance: ALEMTUZUMAB
     Dosage: 12 MG,QD
     Route: 041
     Dates: start: 20180118, end: 20180119

REACTIONS (25)
  - Monocyte count increased [Recovered/Resolved]
  - Crystal urine present [Unknown]
  - Urine abnormality [Not Recovered/Not Resolved]
  - Neutrophil percentage increased [Recovered/Resolved]
  - Heart rate increased [Recovered/Resolved]
  - Eye swelling [Not Recovered/Not Resolved]
  - Erythema [Not Recovered/Not Resolved]
  - Urine leukocyte esterase positive [Recovered/Resolved]
  - Blood urine present [Recovered/Resolved]
  - Amnesia [Not Recovered/Not Resolved]
  - Urinary sediment present [Unknown]
  - Lymphocyte percentage decreased [Not Recovered/Not Resolved]
  - Flushing [Recovering/Resolving]
  - Poor quality sleep [Recovered/Resolved]
  - Visual impairment [Recovered/Resolved]
  - Abdominal pain upper [Recovered/Resolved]
  - Hot flush [Not Recovered/Not Resolved]
  - Urinary casts [Unknown]
  - Bradycardia [Recovered/Resolved]
  - Rash [Not Recovered/Not Resolved]
  - Headache [Recovering/Resolving]
  - Ocular hyperaemia [Not Recovered/Not Resolved]
  - Erythema [Recovering/Resolving]
  - Lymphocyte count decreased [Recovered/Resolved]
  - Fatigue [Not Recovered/Not Resolved]

NARRATIVE: CASE EVENT DATE: 2018
